FAERS Safety Report 18549833 (Version 1)
Quarter: 2020Q4

REPORT INFORMATION
  Report Type: Spontaneous
  Country: US (occurrence: US)
  Receive Date: 20201126
  Receipt Date: 20201126
  Transmission Date: 20210114
  Serious: Yes (Other)
  Sender: FDA-Public Use
  Company Number: US-PFIZER INC-2020466718

PATIENT
  Age: 61 Year
  Sex: Male
  Weight: 68.93 kg

DRUGS (1)
  1. SUTENT [Suspect]
     Active Substance: SUNITINIB MALATE
     Dosage: 25 MG, DAILY
     Route: 048

REACTIONS (3)
  - White blood cell count decreased [Unknown]
  - Immunodeficiency [Unknown]
  - Red blood cell count decreased [Unknown]
